FAERS Safety Report 22202071 (Version 15)
Quarter: 2025Q2

REPORT INFORMATION
  Report Type: Report from Study
  Country: US (occurrence: US)
  Receive Date: 20230412
  Receipt Date: 20250606
  Transmission Date: 20250716
  Serious: Yes (Other)
  Sender: TAKEDA
  Company Number: US-TAKEDA-2022TUS048284

PATIENT
  Age: 52 Year
  Sex: Female
  Weight: 78 kg

DRUGS (36)
  1. HUMAN IMMUNOGLOBULIN G [Suspect]
     Active Substance: HUMAN IMMUNOGLOBULIN G
     Indication: IgG deficiency
     Dosage: 40 GRAM, Q4WEEKS
     Dates: start: 20220706
  2. HUMAN IMMUNOGLOBULIN G [Suspect]
     Active Substance: HUMAN IMMUNOGLOBULIN G
     Dosage: 45 GRAM, Q4WEEKS
  3. HUMAN IMMUNOGLOBULIN G [Suspect]
     Active Substance: HUMAN IMMUNOGLOBULIN G
     Dosage: 45 GRAM, Q4WEEKS
     Dates: start: 20220818
  4. HUMAN IMMUNOGLOBULIN G [Suspect]
     Active Substance: HUMAN IMMUNOGLOBULIN G
     Dosage: 45 GRAM, Q4WEEKS
  5. EPINEPHRINE [Concomitant]
     Active Substance: EPINEPHRINE
  6. ACETAMINOPHEN [Concomitant]
     Active Substance: ACETAMINOPHEN
  7. DICLOFENAC SODIUM [Concomitant]
     Active Substance: DICLOFENAC SODIUM
  8. NIFEDIPINE [Concomitant]
     Active Substance: NIFEDIPINE
  9. HYOSCYAMINE SULFATE [Concomitant]
     Active Substance: HYOSCYAMINE SULFATE
  10. TIZANIDINE HYDROCHLORIDE [Concomitant]
     Active Substance: TIZANIDINE HYDROCHLORIDE
  11. FLUOXETINE HYDROCHLORIDE [Concomitant]
     Active Substance: FLUOXETINE HYDROCHLORIDE
  12. SODIUM CHLORIDE [Concomitant]
     Active Substance: SODIUM CHLORIDE
  13. PANTOPRAZOLE SODIUM [Concomitant]
     Active Substance: PANTOPRAZOLE SODIUM
  14. ALPRAZOLAM [Concomitant]
     Active Substance: ALPRAZOLAM
  15. LIDOCAINE [Concomitant]
     Active Substance: LIDOCAINE
  16. FLUTICASONE PROPIONATE [Concomitant]
     Active Substance: FLUTICASONE PROPIONATE
  17. AMITRIPTYLINE HYDROCHLORIDE [Concomitant]
     Active Substance: AMITRIPTYLINE HYDROCHLORIDE
  18. METOCLOPRAMIDE HYDROCHLORIDE [Concomitant]
     Active Substance: METOCLOPRAMIDE HYDROCHLORIDE
  19. SUMATRIPTAN [Concomitant]
     Active Substance: SUMATRIPTAN
  20. SODIUM CHLORIDE [Concomitant]
     Active Substance: SODIUM CHLORIDE
  21. TRULANCE [Concomitant]
     Active Substance: PLECANATIDE
  22. TEMAZEPAM [Concomitant]
     Active Substance: TEMAZEPAM
  23. DIPHENHYDRAMINE [Concomitant]
     Active Substance: DIPHENHYDRAMINE
  24. GABAPENTIN [Concomitant]
     Active Substance: GABAPENTIN
  25. CETIRIZINE HCL [Concomitant]
     Active Substance: CETIRIZINE HYDROCHLORIDE
  26. VITAMIN D3 [Concomitant]
     Active Substance: CHOLECALCIFEROL
  27. B12 active [Concomitant]
  28. B active [Concomitant]
  29. ACETAMINOPHEN\OXYCODONE HYDROCHLORIDE [Concomitant]
     Active Substance: ACETAMINOPHEN\OXYCODONE HYDROCHLORIDE
  30. DIPHENHYDRAMINE HYDROCHLORIDE [Concomitant]
     Active Substance: DIPHENHYDRAMINE HYDROCHLORIDE
  31. NURTEC ODT [Concomitant]
     Active Substance: RIMEGEPANT SULFATE
  32. ADVIL DUAL ACTION WITH ACETAMINOPHEN [Concomitant]
     Active Substance: ACETAMINOPHEN\IBUPROFEN
  33. AZITHROMYCIN [Concomitant]
     Active Substance: AZITHROMYCIN
  34. KETOROLAC TROMETHAMINE [Concomitant]
     Active Substance: KETOROLAC TROMETHAMINE
  35. VOQUEZNA [Concomitant]
     Active Substance: VONOPRAZAN FUMARATE
  36. BENZONATATE [Concomitant]
     Active Substance: BENZONATATE

REACTIONS (33)
  - Nephrolithiasis [Unknown]
  - Colitis [Unknown]
  - Neuropathy peripheral [Unknown]
  - Impaired gastric emptying [Unknown]
  - Systemic lupus erythematosus [Unknown]
  - Gastroenteritis viral [Unknown]
  - Sinus disorder [Unknown]
  - Renal haemangioma [Unknown]
  - Haemangioma of liver [Unknown]
  - Abdominal rigidity [Unknown]
  - Flank pain [Unknown]
  - Peripheral swelling [Unknown]
  - Product container seal issue [Unknown]
  - Incorrect dose administered [Unknown]
  - Eczema [Unknown]
  - Neuralgia [Recovered/Resolved]
  - Hepatic enzyme increased [Unknown]
  - Pharyngitis streptococcal [Unknown]
  - Sinus congestion [Unknown]
  - Skin exfoliation [Unknown]
  - Fibromyalgia [Unknown]
  - Urinary tract infection [Recovered/Resolved]
  - Sinusitis [Unknown]
  - Pain [Recovering/Resolving]
  - Influenza like illness [Unknown]
  - Pain in extremity [Unknown]
  - Flushing [Unknown]
  - Hypertension [Unknown]
  - Back pain [Not Recovered/Not Resolved]
  - Migraine [Recovering/Resolving]
  - Arthralgia [Recovered/Resolved]
  - Fatigue [Unknown]
  - Nausea [Unknown]

NARRATIVE: CASE EVENT DATE: 20240807
